FAERS Safety Report 22365365 (Version 1)
Quarter: 2023Q2

REPORT INFORMATION
  Report Type: Spontaneous
  Country: US (occurrence: US)
  Receive Date: 20230525
  Receipt Date: 20230525
  Transmission Date: 20230722
  Serious: No
  Sender: FDA-Public Use
  Company Number: US-UCBSA-2023008531

PATIENT
  Sex: Female
  Weight: 60.78 kg

DRUGS (1)
  1. CIMZIA [Suspect]
     Active Substance: CERTOLIZUMAB PEGOL
     Indication: Psoriatic arthropathy
     Dosage: 200 MG/ML X 2, ONCE EVERY 4 WEEKS
     Route: 058
     Dates: start: 20220911

REACTIONS (1)
  - Arthritis [Unknown]
